FAERS Safety Report 8450696 (Version 3)
Quarter: 2013Q2

REPORT INFORMATION
  Report Type: Spontaneous
  Country: US (occurrence: None)
  Receive Date: 20120229
  Receipt Date: 20120523
  Transmission Date: 20140414
  Serious: Yes (Other)
  Sender: FDA-Public Use
  Company Number: 010054

PATIENT
  Sex: Female

DRUGS (1)
  1. SAMSCA [Suspect]
     Indication: HYPONATRAEMIA
     Dosage: 15 MG, SINGLE, ORAL
     Route: 048
     Dates: start: 201003

REACTIONS (2)
  - BLOOD SODIUM INCREASED [None]
  - Rapid correction of hyponatraemia [None]
